FAERS Safety Report 5208855-8 (Version None)
Quarter: 2007Q1

REPORT INFORMATION
  Report Type: 
  Country: None (occurrence: None)
  Receive Date: 20070111
  Receipt Date: 20070111
  Transmission Date: 20070707
  Serious: Yes (Other)
  Sender: FDA-Public Use
  Company Number: None

PATIENT
  Age: 54 Year
  Sex: Female
  Weight: 45.8133 kg

DRUGS (1)
  1. FOSAMAX [Suspect]
     Indication: OSTEOPOROSIS
     Dosage: 1 MONTHLY PO  ONCE
     Route: 048
     Dates: start: 20050125, end: 20050125

REACTIONS (7)
  - ARTHRALGIA [None]
  - EYE PAIN [None]
  - FLUID RETENTION [None]
  - PAIN IN EXTREMITY [None]
  - RASH [None]
  - SWELLING [None]
  - URTICARIA GENERALISED [None]
